FAERS Safety Report 6041088-4 (Version None)
Quarter: 2009Q1

REPORT INFORMATION
  Report Type: 
  Country: None (occurrence: None)
  Receive Date: 20090116
  Receipt Date: 20080814
  Transmission Date: 20090719
  Serious: No
  Sender: FDA-Public Use
  Company Number: US-BRISTOL-MYERS SQUIBB COMPANY-14304695

PATIENT
  Sex: Female

DRUGS (2)
  1. ABILIFY [Suspect]
     Dosage: TAKING FOR 4-6 WEEKS
     Dates: start: 20080101
  2. LAMICTAL [Concomitant]

REACTIONS (1)
  - BLOOD TRIGLYCERIDES INCREASED [None]
